FAERS Safety Report 4690062-9 (Version None)
Quarter: 2005Q2

REPORT INFORMATION
  Report Type: 
  Country: None (occurrence: None)
  Receive Date: 20050614
  Receipt Date: 20050601
  Transmission Date: 20051028
  Serious: Yes (Hospitalization)
  Sender: FDA-Public Use
  Company Number: S05-FRA-01882-01

PATIENT
  Age: 90 Year
  Sex: Female

DRUGS (2)
  1. CITALOPRAM HYDROBROMIDE [Suspect]
     Dosage: 20 MG QD PO
     Route: 048
     Dates: start: 20050205, end: 20050318
  2. LEXOMIL           (BROMAZEPAM) [Concomitant]

REACTIONS (3)
  - ERYTHEMA [None]
  - FIXED ERUPTION [None]
  - SKIN INJURY [None]
